FAERS Safety Report 6862780-5 (Version None)
Quarter: 2010Q3

REPORT INFORMATION
  Report Type: 
  Country: None (occurrence: None)
  Receive Date: 20100721
  Receipt Date: 20100715
  Transmission Date: 20110219
  Serious: Yes (Hospitalization)
  Sender: FDA-Public Use
  Company Number: FR-ROCHE-716005

PATIENT
  Age: 48 Year
  Sex: Female

DRUGS (9)
  1. VALIUM [Suspect]
     Indication: PRODUCT USED FOR UNKNOWN INDICATION
     Route: 048
     Dates: start: 20100520, end: 20100619
  2. ATARAX [Suspect]
     Indication: PRODUCT USED FOR UNKNOWN INDICATION
     Route: 048
     Dates: start: 20100520, end: 20100619
  3. CYMBALTA [Suspect]
     Indication: PRODUCT USED FOR UNKNOWN INDICATION
     Route: 048
     Dates: end: 20100619
  4. RAMIPRIL [Concomitant]
     Route: 048
  5. IMOVANE [Concomitant]
     Route: 048
  6. LANTUS [Concomitant]
     Route: 058
     Dates: end: 20100619
  7. NOCTRAN [Concomitant]
  8. NEXIUM [Concomitant]
  9. CREON [Concomitant]
     Dosage: DRUG REPORTED AS CREON 7

REACTIONS (1)
  - PANCREATITIS ACUTE [None]
